FAERS Safety Report 19415347 (Version 5)
Quarter: 2025Q2

REPORT INFORMATION
  Report Type: Spontaneous
  Country: US (occurrence: US)
  Receive Date: 20210614
  Receipt Date: 20250515
  Transmission Date: 20250716
  Serious: Yes (Other)
  Sender: SANOFI AVENTIS
  Company Number: US-SANOFI-00633140

PATIENT
  Age: 95 Year
  Sex: Female

DRUGS (1)
  1. LANTUS SOLOSTAR [Suspect]
     Active Substance: INSULIN GLARGINE
     Indication: Diabetes mellitus
     Dosage: 25 UNITS AM(MORNING ) + 24 PM(AFTERNOON OR EVENING ) , Q12H
     Route: 065

REACTIONS (10)
  - Diabetes mellitus inadequate control [Unknown]
  - Malaise [Unknown]
  - Feeling abnormal [Unknown]
  - Injection site haemorrhage [Recovering/Resolving]
  - Blood glucose decreased [Recovering/Resolving]
  - Product colour issue [Recovering/Resolving]
  - Poor quality product administered [Recovering/Resolving]
  - Liquid product physical issue [Recovering/Resolving]
  - Inappropriate schedule of product administration [Unknown]
  - Product storage error [Unknown]

NARRATIVE: CASE EVENT DATE: 20210608
